FAERS Safety Report 5152194-0 (Version None)
Quarter: 2006Q4

REPORT INFORMATION
  Report Type: 
  Country: None (occurrence: None)
  Receive Date: 20061116
  Receipt Date: 20061108
  Transmission Date: 20070319
  Serious: Yes (Hospitalization, Other)
  Sender: FDA-Public Use
  Company Number: BW-GLAXOSMITHKLINE-B0446673A

PATIENT
  Age: 31 Year
  Sex: Female

DRUGS (3)
  1. LAMIVUDINE AND ZIDOVUDINE [Suspect]
     Indication: ANTIVIRAL PROPHYLAXIS
     Dosage: 1TAB TWICE PER DAY
     Route: 048
     Dates: start: 20060913
  2. LOPINAVIR + RITONAVIR [Suspect]
     Indication: ANTIVIRAL PROPHYLAXIS
     Dosage: 3CAP TWICE PER DAY
     Route: 048
     Dates: start: 20060913
  3. PROSTAGLANDIN [Concomitant]

REACTIONS (12)
  - ABDOMINAL PAIN UPPER [None]
  - BLOOD PRESSURE SYSTOLIC INCREASED [None]
  - DIZZINESS [None]
  - FOETAL MOVEMENTS DECREASED [None]
  - HEADACHE [None]
  - INTRA-UTERINE DEATH [None]
  - OEDEMA PERIPHERAL [None]
  - OLIGOHYDRAMNIOS [None]
  - PRE-ECLAMPSIA [None]
  - PROTEINURIA [None]
  - SWELLING FACE [None]
  - WEIGHT INCREASED [None]
